FAERS Safety Report 16981149 (Version 1)
Quarter: 2019Q4

REPORT INFORMATION
  Report Type: Spontaneous
  Country: FR (occurrence: FR)
  Receive Date: 20191031
  Receipt Date: 20191031
  Transmission Date: 20200122
  Serious: Yes (Other)
  Sender: FDA-Public Use
  Company Number: FR-JAZZ-2019-FR-014819

PATIENT

DRUGS (5)
  1. DEXAMFETAMINE SULFATE [Suspect]
     Active Substance: DEXTROAMPHETAMINE SULFATE
     Dosage: 10 MG EVERY 12 HOURS
     Route: 048
     Dates: start: 20190215
  2. DEXAMFETAMINE SULFATE [Suspect]
     Active Substance: DEXTROAMPHETAMINE SULFATE
     Dosage: UNKNOWN DOSE WAS REDUCED
     Route: 048
  3. RITALINE [Suspect]
     Active Substance: METHYLPHENIDATE HYDROCHLORIDE
     Indication: HYPERSOMNIA
     Dosage: 30 MG 12 HOURS
     Route: 048
     Dates: start: 20180316
  4. XYREM [Suspect]
     Active Substance: SODIUM OXYBATE
     Indication: HYPERSOMNIA
     Dosage: 4.5 WITH UNKNOWN FREQUENCY
     Route: 048
     Dates: start: 20180907
  5. DEXAMFETAMINE SULFATE [Suspect]
     Active Substance: DEXTROAMPHETAMINE SULFATE
     Indication: HYPERSOMNIA
     Dosage: 5 MG EVERY 12 HOURS
     Route: 048
     Dates: start: 201901, end: 20190215

REACTIONS (3)
  - Ventricular tachycardia [Unknown]
  - Product use in unapproved indication [Unknown]
  - Ventricular extrasystoles [Unknown]

NARRATIVE: CASE EVENT DATE: 20180907
